FAERS Safety Report 4385563-7 (Version None)
Quarter: 2004Q2

REPORT INFORMATION
  Report Type: 
  Country: None (occurrence: None)
  Receive Date: 20040622
  Receipt Date: 20021217
  Transmission Date: 20050107
  Serious: Yes (Hospitalization)
  Sender: FDA-Public Use
  Company Number: A02200202142

PATIENT
  Age: 59 Year
  Sex: Male

DRUGS (6)
  1. PLAVIX [Suspect]
     Indication: ANGINA PECTORIS
     Dosage: 75 MG OD, ORAL
     Route: 048
     Dates: start: 20020501, end: 20020601
  2. XATRAL - (ALFUZOSIN) [Suspect]
     Indication: PROSTATIC DISORDER
     Dosage: 1 UNIT OD, ORAL
     Route: 048
     Dates: start: 20020801
  3. ASPEGIC 1000 [Suspect]
     Indication: ANGINA PECTORIS
     Dosage: 250 MG OD, ORAL
     Route: 048
     Dates: start: 20020501
  4. RAMIPRIL [Suspect]
     Indication: ANGINA PECTORIS
     Dosage: 2.5 MG OD, ORAL
     Route: 048
     Dates: start: 20020501
  5. ANDACOR - (NICORANDIL) [Suspect]
     Indication: ANGINA PECTORIS
     Dosage: 10 MG, ORAL
     Route: 048
     Dates: start: 20020501
  6. ZOCOR [Suspect]
     Indication: HYPERCHOLESTEROLAEMIA
     Dosage: 10 MG OD, ORAL
     Route: 048
     Dates: start: 20020501, end: 20020901

REACTIONS (5)
  - ARTHRALGIA [None]
  - BLOOD CREATINE PHOSPHOKINASE INCREASED [None]
  - DYSPNOEA [None]
  - MYALGIA [None]
  - RHEUMATOID ARTHRITIS [None]
